FAERS Safety Report 6817022-3 (Version None)
Quarter: 2010Q3

REPORT INFORMATION
  Report Type: 
  Country: None (occurrence: None)
  Receive Date: 20100706
  Receipt Date: 20100629
  Transmission Date: 20110219
  Serious: Yes (Death, Hospitalization)
  Sender: FDA-Public Use
  Company Number: US-ROCHE-627381

PATIENT
  Sex: Male
  Weight: 99.8 kg

DRUGS (12)
  1. MYCOPHENOLATE MOFETIL [Suspect]
     Route: 048
     Dates: start: 20081030, end: 20090201
  2. CP-690550 [Suspect]
     Route: 048
     Dates: start: 20081030, end: 20090201
  3. PREDNISONE TAB [Suspect]
     Route: 048
     Dates: start: 20081102, end: 20090201
  4. BACTRIM [Concomitant]
     Dates: start: 20081031, end: 20090203
  5. AMLODIPINE [Concomitant]
     Dates: start: 20081101, end: 20090204
  6. INSULIN GLARGINE [Concomitant]
     Dates: start: 20081101, end: 20090204
  7. CARVEDILOL [Concomitant]
     Dates: start: 20081119, end: 20090204
  8. LISINOPRIL [Concomitant]
     Dates: start: 20081119, end: 20090204
  9. VALCYTE [Concomitant]
     Dates: start: 20081031, end: 20090203
  10. OMEPRAZOLE [Concomitant]
     Dates: start: 20081119, end: 20090204
  11. FAMOTIDINE [Concomitant]
     Dates: start: 20081031, end: 20090130
  12. NYSTATIN [Concomitant]
     Dates: start: 20081031, end: 20090130

REACTIONS (12)
  - BRAIN DEATH [None]
  - CARDIAC ARREST [None]
  - DEHYDRATION [None]
  - HYPERKALAEMIA [None]
  - HYPOXIA [None]
  - METABOLIC ACIDOSIS [None]
  - NEUTROPENIA [None]
  - PNEUMONIA [None]
  - PULMONARY EMBOLISM [None]
  - RENAL IMPAIRMENT [None]
  - SEPSIS [None]
  - SEPTIC SHOCK [None]
